FAERS Safety Report 7468174-6 (Version None)
Quarter: 2011Q2

REPORT INFORMATION
  Report Type: 
  Country: None (occurrence: None)
  Receive Date: 20110509
  Receipt Date: 20110502
  Transmission Date: 20111010
  Serious: Yes (Hospitalization)
  Sender: FDA-Public Use
  Company Number: US-ALEXION PHARMACEUTICALS INC.-A201100157

PATIENT
  Sex: Male

DRUGS (4)
  1. VITAMINS NOS [Concomitant]
     Dosage: UNK
     Route: 048
  2. SOLIRIS [Suspect]
     Dosage: 900 MG, Q2W
     Route: 042
  3. SOLIRIS [Suspect]
     Indication: PAROXYSMAL NOCTURNAL HAEMOGLOBINURIA
     Dosage: 900 MG, Q2W
     Route: 042
     Dates: start: 20100701
  4. ALLEGRA [Concomitant]
     Indication: PROPHYLAXIS

REACTIONS (3)
  - CONDITION AGGRAVATED [None]
  - BLOOD PRODUCT TRANSFUSION DEPENDENT [None]
  - BONE MARROW TRANSPLANT [None]
